FAERS Safety Report 20924004 (Version 6)
Quarter: 2023Q1

REPORT INFORMATION
  Report Type: Spontaneous
  Country: US (occurrence: US)
  Receive Date: 20220607
  Receipt Date: 20230331
  Transmission Date: 20230418
  Serious: Yes (Death)
  Sender: FDA-Public Use
  Company Number: US-PFIZER INC-202200769545

PATIENT
  Sex: Female
  Weight: 20.9 kg

DRUGS (14)
  1. CELECOXIB [Suspect]
     Active Substance: CELECOXIB
     Indication: Medulloblastoma
     Dosage: 250 MG/M2, DAILY
  2. CELECOXIB [Suspect]
     Active Substance: CELECOXIB
     Indication: Neoplasm
  3. BEVACIZUMAB [Suspect]
     Active Substance: BEVACIZUMAB
     Indication: Medulloblastoma
     Dosage: 5 MG/KG, EVERY 3 WEEKS
  4. BEVACIZUMAB [Suspect]
     Active Substance: BEVACIZUMAB
     Indication: Neoplasm
  5. ETOPOSIDE [Suspect]
     Active Substance: ETOPOSIDE
     Indication: Medulloblastoma
     Dosage: 24.6 MG/M2
  6. ETOPOSIDE [Suspect]
     Active Substance: ETOPOSIDE
     Indication: Neoplasm
     Dosage: 50 MG/M2 DAY; DAYS 1-21 EVERY 42 DAYS
     Dates: start: 20120220
  7. ETOPOSIDE [Suspect]
     Active Substance: ETOPOSIDE
     Dosage: REDUCING THE ETOPOSIDE DOSE BY 50%
     Dates: start: 20120717
  8. CYCLOPHOSPHAMIDE [Suspect]
     Active Substance: CYCLOPHOSPHAMIDE
     Indication: Medulloblastoma
     Dosage: 30.9 MG/M2, DAILY, DAYS 22-42
  9. CYCLOPHOSPHAMIDE [Suspect]
     Active Substance: CYCLOPHOSPHAMIDE
     Indication: Neoplasm
     Dosage: 50 MG/M2 DAY; DAYS 22-42 EVERY 42 DAYS
     Dates: start: 20120220
  10. CYCLOPHOSPHAMIDE [Suspect]
     Active Substance: CYCLOPHOSPHAMIDE
     Dosage: EQUIRING A 50% CYCLOPHOSPHAMIDE DOSE REDUCTION
     Dates: start: 20210928
  11. VALPROIC ACID [Suspect]
     Active Substance: VALPROIC ACID
     Indication: Medulloblastoma
     Dosage: 15 MG/KG, DAILY
  12. VALPROIC ACID [Suspect]
     Active Substance: VALPROIC ACID
     Indication: Neoplasm
  13. TEMOZOLOMIDE [Suspect]
     Active Substance: TEMOZOLOMIDE
     Indication: Neoplasm
     Dosage: 60 MG/M2, DAILY, DAYS 1-21
  14. TEMOZOLOMIDE [Suspect]
     Active Substance: TEMOZOLOMIDE
     Indication: Medulloblastoma

REACTIONS (3)
  - Drug ineffective [Fatal]
  - Cranial nerve disorder [Fatal]
  - Haematotoxicity [Fatal]
